FAERS Safety Report 22947707 (Version 2)
Quarter: 2023Q4

REPORT INFORMATION
  Report Type: Spontaneous
  Country: US (occurrence: US)
  Receive Date: 20230915
  Receipt Date: 20231102
  Transmission Date: 20240110
  Serious: Yes (Other)
  Sender: FDA-Public Use
  Company Number: US-BRISTOL-MYERS SQUIBB COMPANY-2023-129558

PATIENT
  Age: 67 Year
  Sex: Male

DRUGS (1)
  1. REVLIMID [Suspect]
     Active Substance: LENALIDOMIDE
     Indication: Plasma cell myeloma
     Dosage: TAKE 1 CAPSULE (5MG) BY MOUTH WHOLE WITH WATER AROUND SAME TIME EACH DAY EVERY OTHER DAY FOR 21 DAYS
     Route: 048
     Dates: start: 20220628

REACTIONS (2)
  - Tooth disorder [Recovered/Resolved]
  - Off label use [Unknown]
